FAERS Safety Report 17476925 (Version 1)
Quarter: 2020Q1

REPORT INFORMATION
  Report Type: Report from Study
  Country: CO (occurrence: CO)
  Receive Date: 20200228
  Receipt Date: 20200228
  Transmission Date: 20200409
  Serious: Yes (Other)
  Sender: FDA-Public Use
  Company Number: CO-JNJFOC-20191011291

PATIENT

DRUGS (2)
  1. SIMPONI [Suspect]
     Active Substance: GOLIMUMAB
     Indication: PSORIATIC ARTHROPATHY
     Route: 058
     Dates: start: 20140822, end: 20150319
  2. SIMPONI [Suspect]
     Active Substance: GOLIMUMAB
     Route: 058
     Dates: start: 2015

REACTIONS (8)
  - Injection site rash [Unknown]
  - Influenza [Unknown]
  - Psoriatic arthropathy [Unknown]
  - Headache [Unknown]
  - Product dose omission [Unknown]
  - Drug ineffective [Unknown]
  - Sensory disturbance [Unknown]
  - Tuberculosis [Unknown]
